FAERS Safety Report 20969386 (Version 1)
Quarter: 2022Q2

REPORT INFORMATION
  Report Type: Spontaneous
  Country: US (occurrence: None)
  Receive Date: 20220616
  Receipt Date: 20220616
  Transmission Date: 20220721
  Serious: Yes (Other)
  Sender: FDA-Public Use
  Company Number: None

PATIENT
  Age: 74 Year
  Sex: Female
  Weight: 61.65 kg

DRUGS (4)
  1. DUREZOL [Suspect]
     Active Substance: DIFLUPREDNATE
     Indication: Scleritis
     Dosage: 1 DROP TWICE A DAY OPHTHALMIC?
     Route: 047
     Dates: start: 20210902, end: 20210919
  2. SALAGEN [Concomitant]
     Active Substance: PILOCARPINE HYDROCHLORIDE
  3. SYNTHROID [Concomitant]
     Active Substance: LEVOTHYROXINE SODIUM
  4. Rosuvostatin [Concomitant]

REACTIONS (11)
  - Adverse drug reaction [None]
  - Cognitive disorder [None]
  - Bradyphrenia [None]
  - Gastrointestinal disorder [None]
  - Gastritis [None]
  - Oral candidiasis [None]
  - Genital infection fungal [None]
  - Anal fungal infection [None]
  - Steroid therapy [None]
  - Scleritis [None]
  - Disease recurrence [None]

NARRATIVE: CASE EVENT DATE: 20210902
